FAERS Safety Report 7407578-4 (Version None)
Quarter: 2011Q2

REPORT INFORMATION
  Report Type: 
  Country: None (occurrence: None)
  Receive Date: 20110412
  Receipt Date: 20110328
  Transmission Date: 20111010
  Serious: Yes (Death)
  Sender: FDA-Public Use
  Company Number: US-CELGENEUS-163-21880-11022248

PATIENT
  Sex: Male

DRUGS (16)
  1. CYTOXAN [Concomitant]
     Indication: MULTIPLE MYELOMA
     Dosage: 300 MILLIGRAM
     Route: 065
  2. FLUDROCORT [Concomitant]
     Route: 065
  3. PYROXIDENE [Concomitant]
     Route: 065
  4. REVLIMID [Suspect]
     Indication: MULTIPLE MYELOMA
     Dosage: 5 MILLIGRAM
     Route: 048
     Dates: start: 20110127, end: 20110130
  5. COQ10 [Concomitant]
     Route: 065
  6. POTASSIUM CHLORIDE [Concomitant]
     Route: 065
  7. QUERCETIN [Concomitant]
     Route: 065
  8. MULTI-VITAMINS [Concomitant]
     Route: 065
  9. VITAMIN D [Concomitant]
     Route: 065
  10. PREDNISONE [Concomitant]
     Indication: MULTIPLE MYELOMA
     Dosage: 10 MILLIGRAM
     Route: 065
     Dates: end: 20110130
  11. KELP [Concomitant]
     Route: 065
  12. FLORINEF [Concomitant]
     Dosage: .1 MILLIGRAM
     Route: 065
  13. NAHCO3 [Concomitant]
     Route: 065
  14. IODINE [Concomitant]
     Route: 065
  15. ZYFLO [Concomitant]
     Route: 065
  16. ASPIRIN [Concomitant]
     Dosage: 325 MILLIGRAM
     Route: 065

REACTIONS (1)
  - MULTIPLE MYELOMA [None]
